FAERS Safety Report 8943036 (Version 5)
Quarter: 2014Q2

REPORT INFORMATION
  Report Type: Spontaneous
  Country: US (occurrence: None)
  Receive Date: 20121121
  Receipt Date: 20140521
  Transmission Date: 20141212
  Serious: Yes (Hospitalization)
  Sender: FDA-Public Use
  Company Number: 2012SGN00514

PATIENT
  Age: 25 Year
  Sex: Female

DRUGS (1)
  1. BRENTUXIMAB VEDOTIN [Suspect]
     Indication: HODGKIN^S DISEASE REFRACTORY
     Dates: start: 20121012, end: 20121025

REACTIONS (3)
  - Pancreatitis [None]
  - Cholelithiasis [None]
  - Blood glucose increased [None]
